FAERS Safety Report 15310106 (Version 5)
Quarter: 2019Q3

REPORT INFORMATION
  Report Type: Spontaneous
  Country: US (occurrence: US)
  Receive Date: 20180823
  Receipt Date: 20190828
  Transmission Date: 20191004
  Serious: No
  Sender: FDA-Public Use
  Company Number: US-PFIZER INC-2018338461

PATIENT
  Age: 26 Year
  Sex: Male
  Weight: 136 kg

DRUGS (7)
  1. SOMAVERT [Suspect]
     Active Substance: PEGVISOMANT
     Dosage: 60 MG, DAILY
     Dates: start: 20170421
  2. SANDOSTATIN LAR DEPOT [Concomitant]
     Active Substance: OCTREOTIDE ACETATE
     Indication: ACROMEGALY
     Dosage: 30 MG, EVERY 3 WEEKS (30MG INJECTION ONCE EVERY 3 WEEKS)
  3. SOMAVERT [Suspect]
     Active Substance: PEGVISOMANT
     Indication: ACROMEGALY
     Dosage: 60 MG, DAILY
     Dates: start: 20170407
  4. CABERGOLINE. [Concomitant]
     Active Substance: CABERGOLINE
     Indication: ACROMEGALY
     Dosage: 0.5 MG, WEEKLY
     Dates: start: 2019
  5. SOMAVERT [Suspect]
     Active Substance: PEGVISOMANT
     Dosage: 60 MG, DAILY
     Route: 058
     Dates: start: 201704
  6. SOMAVERT [Suspect]
     Active Substance: PEGVISOMANT
     Dosage: 60 MG, DAILY
     Route: 058
     Dates: start: 20180201
  7. OCTREOTIDE. [Concomitant]
     Active Substance: OCTREOTIDE
     Indication: ACROMEGALY
     Dosage: 200 UG, UNK (INJECTION EVERY 2 HOURS)
     Dates: start: 2017

REACTIONS (19)
  - Off label use [Unknown]
  - Blood testosterone increased [Unknown]
  - Non-high-density lipoprotein cholesterol increased [Unknown]
  - Headache [Not Recovered/Not Resolved]
  - Glycosylated haemoglobin increased [Unknown]
  - Blood glucose increased [Unknown]
  - Blood triglycerides increased [Unknown]
  - Hyperhidrosis [Not Recovered/Not Resolved]
  - Insulin-like growth factor increased [Unknown]
  - Blood thyroid stimulating hormone decreased [Unknown]
  - Bone density increased [Unknown]
  - Product use issue [Unknown]
  - Alanine aminotransferase increased [Unknown]
  - Low density lipoprotein increased [Unknown]
  - Glucose tolerance impaired [Not Recovered/Not Resolved]
  - Arthralgia [Not Recovered/Not Resolved]
  - Fatigue [Not Recovered/Not Resolved]
  - Thyroxine free decreased [Unknown]
  - Thyroid gland scan abnormal [Unknown]

NARRATIVE: CASE EVENT DATE: 20170407
